FAERS Safety Report 9044652 (Version 2)
Quarter: 2013Q4

REPORT INFORMATION
  Report Type: Spontaneous
  Country: CA (occurrence: US)
  Receive Date: 20130130
  Receipt Date: 20131015
  Transmission Date: 20140711
  Serious: Yes (Death)
  Sender: FDA-Public Use
  Company Number: CA-OTSUKA-US-2013-10132

PATIENT
  Sex: 0

DRUGS (27)
  1. BUSULFEX [Suspect]
     Indication: ACUTE LYMPHOCYTIC LEUKAEMIA
     Dosage: 3.2 MG/KG, DAILY DOSE
     Route: 065
  2. ALENDRONATE [Concomitant]
     Route: 048
  3. ASPARAGINASE [Suspect]
     Route: 030
  4. BACTRIM [Concomitant]
  5. CALCIUM + VITAMIN D [Concomitant]
  6. CYCLOPHOSPHAMIDE [Suspect]
     Dosage: 60.00 MG/KG, UNK
     Route: 065
  7. CYCLOSPORINE [Concomitant]
  8. CYTARABINE [Suspect]
     Dosage: 40 MG MILLIGRAM(S), UNK
     Route: 037
  9. DEXAMETHASONE [Suspect]
     Dosage: 9 MG/M2, BID
     Route: 048
  10. DEXAMETHASONE [Suspect]
     Dosage: 6.0 MG/M2, UNK
     Route: 048
  11. DOXORUBICIN HYDROCHLORIDE [Suspect]
     Dosage: 30 MG/M2, UNK
     Route: 042
  12. FLUCONAZOLE [Concomitant]
  13. FLUDARABINE [Suspect]
     Dosage: 30 MG/M2, UNK
     Route: 065
  14. FLUDARABINE [Suspect]
     Dosage: 50 MG/M2, UNK
     Route: 065
  15. GLEEVEC [Suspect]
     Dosage: 400 MG MILLIGRAM(S), UNK
     Route: 048
  16. HYDROCORTISONE [Suspect]
     Dosage: 15 MG MILLIGRAM(S), UNK
     Route: 037
  17. LEUCOVORIN [Suspect]
     Route: 065
  18. MABCAMPATH [Concomitant]
     Dosage: UNK
  19. METHOTREXATE [Suspect]
     Dosage: 12 MG MILLIGRAM(S), UNK
     Route: 037
  20. METHOTREXATE [Suspect]
     Dosage: 30.0 MG/M2, UNK
     Route: 042
  21. METHOTREXATE [Suspect]
     Dosage: 30 MG/M2, UNK
     Route: 030
  22. RISEDRONATE SODIUM [Concomitant]
  23. VINCRISTINE SULFATE SYNTHELABO [Suspect]
     Dosage: 2 MG MILLIGRAM(S), UNK
     Route: 042
  24. MERCAPTOPURINE [Suspect]
     Dosage: 50 MG/M2, UNK
     Route: 048
  25. METHOTREXATE [Concomitant]
  26. PENTAMIDINE ISETHIONATE [Concomitant]
  27. PREDNISONE [Suspect]
     Dosage: 10 MG MILLIGRAM(S), QD
     Route: 048

REACTIONS (1)
  - Influenza [Fatal]
